FAERS Safety Report 18579647 (Version 1)
Quarter: 2020Q4

REPORT INFORMATION
  Report Type: Spontaneous
  Country: US (occurrence: US)
  Receive Date: 20201204
  Receipt Date: 20201204
  Transmission Date: 20210114
  Serious: Yes (Hospitalization, Other)
  Sender: FDA-Public Use
  Company Number: US-SCIEGEN-2020SCILIT00445

PATIENT
  Age: 48 Year
  Sex: Male

DRUGS (7)
  1. ARIPIPRAZOLE. [Suspect]
     Active Substance: ARIPIPRAZOLE
     Route: 065
  2. ACETAMINOPHEN. [Interacting]
     Active Substance: ACETAMINOPHEN
     Indication: PAIN
     Route: 065
  3. CLOZAPINE. [Concomitant]
     Active Substance: CLOZAPINE
     Indication: PSYCHOTIC DISORDER
     Route: 048
  4. CLOZAPINE. [Concomitant]
     Active Substance: CLOZAPINE
     Route: 048
  5. LORAZEPAM. [Interacting]
     Active Substance: LORAZEPAM
     Indication: MUSCLE SPASMS
     Route: 048
  6. BENZTROPINE [BENZATROPINE] [Interacting]
     Active Substance: BENZTROPINE
     Indication: PLEUROTHOTONUS
     Route: 048
  7. ARIPIPRAZOLE. [Suspect]
     Active Substance: ARIPIPRAZOLE
     Indication: SCHIZOPHRENIA
     Route: 065

REACTIONS (1)
  - Pleurothotonus [Recovered/Resolved]
